FAERS Safety Report 7916967-0 (Version None)
Quarter: 2011Q4

REPORT INFORMATION
  Report Type: 
  Country: None (occurrence: None)
  Receive Date: 20111116
  Receipt Date: 20111116
  Transmission Date: 20120403
  Serious: Yes (Hospitalization)
  Sender: FDA-Public Use
  Company Number: None

PATIENT
  Age: 62 Year
  Sex: Female
  Weight: 67.585 kg

DRUGS (4)
  1. ACEBUTOLOL [Concomitant]
  2. CALCIUM CITRATE [Concomitant]
  3. FULVESTRANT [Suspect]
  4. VITAMIN D [Concomitant]

REACTIONS (2)
  - REFUSAL OF TREATMENT BY PATIENT [None]
  - PLEURAL EFFUSION [None]
